FAERS Safety Report 13953318 (Version 1)
Quarter: 2017Q3

REPORT INFORMATION
  Report Type: Spontaneous
  Country: US (occurrence: US)
  Receive Date: 20170911
  Receipt Date: 20170911
  Transmission Date: 20171128
  Serious: No
  Sender: FDA-Public Use
  Company Number: US-ASTRAZENECA-2017SE90366

PATIENT
  Age: 70 Year
  Sex: Female
  Weight: 67.6 kg

DRUGS (2)
  1. BYDUREON [Suspect]
     Active Substance: EXENATIDE
     Indication: TYPE 2 DIABETES MELLITUS
     Route: 058
     Dates: start: 201703
  2. GLIMEPIRIDE. [Concomitant]
     Active Substance: GLIMEPIRIDE
     Dosage: UNKNOWN
     Route: 065

REACTIONS (7)
  - Diarrhoea [Unknown]
  - Rhinorrhoea [Unknown]
  - Asthenia [Unknown]
  - Decreased appetite [Not Recovered/Not Resolved]
  - Dizziness [Unknown]
  - Hypoglycaemia [Unknown]
  - Device malfunction [Unknown]

NARRATIVE: CASE EVENT DATE: 2017
